FAERS Safety Report 16809653 (Version 1)
Quarter: 2019Q4

REPORT INFORMATION
  Report Type: Spontaneous
  Country: US (occurrence: US)
  Receive Date: 20190914
  Receipt Date: 20190914
  Transmission Date: 20200122
  Serious: Yes (Life-Threatening, Hospitalization, Disabling)
  Sender: FDA-Public Use
  Company Number: None

PATIENT
  Age: 49 Year
  Sex: Male
  Weight: 76.2 kg

DRUGS (4)
  1. ABILIFY [Suspect]
     Active Substance: ARIPIPRAZOLE
     Indication: SCHIZOPHRENIA
  2. OMEPRAZOLE. [Suspect]
     Active Substance: OMEPRAZOLE
  3. TRAZODONE [Suspect]
     Active Substance: TRAZODONE HYDROCHLORIDE
  4. WELLBUTRIN [Suspect]
     Active Substance: BUPROPION HYDROCHLORIDE

REACTIONS (34)
  - Hypoacusis [None]
  - Unevaluable event [None]
  - Myopia [None]
  - Malabsorption [None]
  - Abnormal faeces [None]
  - Tobacco user [None]
  - Headache [None]
  - Cardiac disorder [None]
  - Skin injury [None]
  - Faeces discoloured [None]
  - Bone marrow disorder [None]
  - Feeling cold [None]
  - Feeling hot [None]
  - Hypermetropia [None]
  - Pain [None]
  - Myocardial infarction [None]
  - Hallucination, auditory [None]
  - Anxiety [None]
  - Autoscopy [None]
  - Hyperhidrosis [None]
  - Haematochezia [None]
  - Foreign body [None]
  - Cerebral disorder [None]
  - Eye disorder [None]
  - Tooth disorder [None]
  - Temporomandibular joint syndrome [None]
  - Gastrooesophageal reflux disease [None]
  - Dyspepsia [None]
  - Nail disorder [None]
  - Gastrointestinal disorder [None]
  - Anosmia [None]
  - Nasal disorder [None]
  - Muscle injury [None]
  - Disorientation [None]

NARRATIVE: CASE EVENT DATE: 20130101
